FAERS Safety Report 20517004 (Version 1)
Quarter: 2022Q1

REPORT INFORMATION
  Report Type: Spontaneous
  Country: GB (occurrence: GB)
  Receive Date: 20220225
  Receipt Date: 20220225
  Transmission Date: 20220424
  Serious: Yes (Other)
  Sender: FDA-Public Use
  Company Number: GB-002147023-NVSC2022GB022240

PATIENT
  Age: 68 Year
  Sex: Male

DRUGS (2)
  1. LUCENTIS [Suspect]
     Active Substance: RANIBIZUMAB
     Indication: Product used for unknown indication
     Dosage: UNK (51 INJECTIONS)
     Route: 065
  2. EYLEA [Suspect]
     Active Substance: AFLIBERCEPT
     Indication: Product used for unknown indication
     Dosage: UNK (51 INJECTIONS)
     Route: 065

REACTIONS (5)
  - Iridocyclitis [Recovered/Resolved]
  - Vitritis [Unknown]
  - Vitreous floaters [Unknown]
  - Photophobia [Unknown]
  - Drug ineffective [Unknown]
